FAERS Safety Report 6128302-1 (Version None)
Quarter: 2009Q1

REPORT INFORMATION
  Report Type: 
  Country: None (occurrence: None)
  Receive Date: 20090323
  Receipt Date: 20090313
  Transmission Date: 20090719
  Serious: Yes (Hospitalization)
  Sender: FDA-Public Use
  Company Number: A0763064A

PATIENT
  Age: 48 Year
  Sex: Male
  Weight: 95 kg

DRUGS (6)
  1. ROSIGLITAZONE MALEATE [Suspect]
     Dosage: 4MG TWICE PER DAY
     Route: 048
     Dates: start: 20061006, end: 20071209
  2. ISOSORBIDE [Concomitant]
  3. DIOVAN [Concomitant]
  4. ZOCOR [Concomitant]
  5. VITAMINS [Concomitant]
  6. PLAVIX [Concomitant]

REACTIONS (7)
  - ANXIETY [None]
  - CARDIAC DISORDER [None]
  - DEPRESSION [None]
  - FATIGUE [None]
  - MYOCARDIAL INFARCTION [None]
  - MYOCARDIAL ISCHAEMIA [None]
  - PAIN [None]
